FAERS Safety Report 9034459 (Version 1)
Quarter: 2013Q1

REPORT INFORMATION
  Report Type: Spontaneous
  Country: US (occurrence: None)
  Receive Date: 20130116
  Receipt Date: 20130116
  Transmission Date: 20140127
  Serious: No
  Sender: FDA-Public Use
  Company Number: None

PATIENT
  Age: 62 Year
  Sex: Female
  Weight: 68.04 kg

DRUGS (1)
  1. LIVALO [Suspect]
     Route: 048
     Dates: start: 20121010, end: 20121204

REACTIONS (8)
  - Dizziness [None]
  - Impaired driving ability [None]
  - Insomnia [None]
  - Fatigue [None]
  - Back pain [None]
  - Headache [None]
  - Constipation [None]
  - Abdominal pain [None]
